FAERS Safety Report 11210530 (Version 2)
Quarter: 2016Q2

REPORT INFORMATION
  Report Type: Spontaneous
  Country: AU (occurrence: AU)
  Receive Date: 20150622
  Receipt Date: 20160419
  Transmission Date: 20160815
  Serious: Yes (Life-Threatening, Hospitalization, Other)
  Sender: FDA-Public Use
  Company Number: AU-B.I. PHARMACEUTICALS,INC./RIDGEFIELD-2015-BI-32763GD

PATIENT
  Age: 47 Year
  Sex: Male

DRUGS (2)
  1. CATAPRES [Suspect]
     Active Substance: CLONIDINE HYDROCHLORIDE
     Indication: BACK PAIN
     Dosage: 550 MCG
     Route: 037
  2. CATAPRES [Suspect]
     Active Substance: CLONIDINE HYDROCHLORIDE
     Dosage: 3600 MCG
     Route: 042

REACTIONS (8)
  - Drug withdrawal syndrome [Unknown]
  - Pulmonary oedema [Unknown]
  - Hypoxia [Unknown]
  - Autonomic nervous system imbalance [Unknown]
  - Hypertensive crisis [Unknown]
  - Tachycardia [Unknown]
  - Product use issue [Unknown]
  - Stress cardiomyopathy [Recovered/Resolved]
